FAERS Safety Report 14315473 (Version 1)
Quarter: 2017Q4

REPORT INFORMATION
  Report Type: Spontaneous
  Country: DE (occurrence: DE)
  Receive Date: 20171221
  Receipt Date: 20171221
  Transmission Date: 20180321
  Serious: Yes (Other)
  Sender: FDA-Public Use
  Company Number: DE-OTSUKA-2017_026818

PATIENT
  Age: 59 Year
  Sex: Female

DRUGS (10)
  1. METHYLPREDNISOLONE. [Suspect]
     Active Substance: METHYLPREDNISOLONE
     Indication: HASHIMOTO^S ENCEPHALOPATHY
     Dosage: 5 MG ? 500 MG FOR FIVE CONSECUTIVE DAYS, PROD SEQ NUMBER (C0466709-0F9C-3AB7-BA73-96555E0ABFDE)
     Route: 065
     Dates: start: 2016, end: 201609
  2. ARIPIPRAZOLE. [Suspect]
     Active Substance: ARIPIPRAZOLE
     Indication: NERVOUS SYSTEM DISORDER
     Dosage: 15 MG, QD PROD SEQ NUMBER (45F0FF92-CF25-306D-A36D-E20E787D719F)
     Route: 065
     Dates: start: 2016, end: 2016
  3. VENLAFAXINE HYDROCHLORIDE. [Suspect]
     Active Substance: VENLAFAXINE HYDROCHLORIDE
     Indication: DEPRESSION
     Dosage: 150 MG, QD PROD SEQ NUMBER (9AEB6C92-07A6-3AAB-9D1C-2EAD60623C9E)
     Route: 065
     Dates: start: 2016, end: 2016
  4. AMISULPRIDE [Suspect]
     Active Substance: AMISULPRIDE
     Indication: NERVOUS SYSTEM DISORDER
     Dosage: UP TO 400 MG/DAY (PROD SEQ NUMBER: F553A026-8CCF-37D3-88F3-74C43B2EB73F)
     Route: 065
     Dates: start: 2016, end: 2016
  5. FLUPENTIXOL [Suspect]
     Active Substance: FLUPENTIXOL
     Indication: NERVOUS SYSTEM DISORDER
     Dosage: 1.5 MG, QD, PROD SEQ NUMBER (BBB31840-B6B3-32D9-BE67-5C9701A53B9E)
     Route: 065
     Dates: start: 2016, end: 2016
  6. LORAZEPAM. [Suspect]
     Active Substance: LORAZEPAM
     Indication: ANXIETY
     Dosage: 5 MG, QD, PROD SEQ NUMBER (E61EF9-575A-31E2-B9A4-CCB313BD8C68)
     Route: 065
     Dates: start: 2016, end: 2016
  7. QUETIAPINE FUMARATE. [Suspect]
     Active Substance: QUETIAPINE FUMARATE
     Indication: NERVOUS SYSTEM DISORDER
     Dosage: 200 MG, QD (PROD SEQ NUMBER: E6A86994-E49B-392E-901D-F6B80953D09B)
     Route: 065
     Dates: start: 2016, end: 2016
  8. CITALOPRAM [Suspect]
     Active Substance: CITALOPRAM HYDROBROMIDE
     Indication: DEPRESSION
     Dosage: 20 MG, QD, PROD SEQ NUMBER (C92F14AB-8E31-34C8-91C1-3D85D5F41E1F)
     Route: 065
     Dates: start: 2016, end: 2016
  9. METHYLPREDNISOLONE. [Suspect]
     Active Substance: METHYLPREDNISOLONE
     Indication: AUTOIMMUNE THYROIDITIS
     Dosage: 5 MG ? 500 MG FOR FIVE CONSECUTIVE DAYS, PROD SEQ NUMBER (8725D51A-BF27-3E93-948A-32A727D0A6EE)
     Route: 065
     Dates: start: 2016, end: 201609
  10. RISPERIDONE. [Suspect]
     Active Substance: RISPERIDONE
     Indication: NERVOUS SYSTEM DISORDER
     Dosage: 4 MG, QD, PROD SEQ NUMBER (DAB66036-72AD-3F12-98B4-D8E3DDE4DB88)
     Route: 065
     Dates: start: 2016, end: 2016

REACTIONS (3)
  - Condition aggravated [Recovering/Resolving]
  - Drug ineffective [Unknown]
  - Cognitive disorder [Recovering/Resolving]

NARRATIVE: CASE EVENT DATE: 2016
